FAERS Safety Report 4943685-3 (Version None)
Quarter: 2006Q1

REPORT INFORMATION
  Report Type: 
  Country: None (occurrence: None)
  Receive Date: 20060314
  Receipt Date: 20051114
  Transmission Date: 20060701
  Serious: Yes (Hospitalization, Disabling)
  Sender: FDA-Public Use
  Company Number: US-MERCK-0511USA02624

PATIENT
  Age: 49 Year
  Sex: Male
  Weight: 82 kg

DRUGS (8)
  1. VIOXX [Suspect]
     Indication: BACK PAIN
     Route: 048
     Dates: start: 20020501, end: 20021015
  2. VIOXX [Suspect]
     Route: 048
     Dates: start: 20020501, end: 20021015
  3. NEURONTIN [Concomitant]
     Indication: NEURALGIA
     Route: 065
     Dates: start: 20020101, end: 20020801
  4. ZOLOFT [Concomitant]
     Indication: ANXIETY
     Route: 065
  5. ZOLOFT [Concomitant]
     Indication: DEPRESSION
     Route: 065
  6. DIPHENHYDRAMINE CITRATE [Concomitant]
     Indication: NAUSEA
     Route: 065
  7. PREVACID [Concomitant]
     Indication: GASTRIC DISORDER
     Route: 065
  8. PRILOSEC [Concomitant]
     Route: 048

REACTIONS (6)
  - BLOOD CHOLESTEROL INCREASED [None]
  - BLOOD FOLATE DECREASED [None]
  - DEEP VEIN THROMBOSIS [None]
  - DIZZINESS [None]
  - HYPERTENSION [None]
  - MYOCARDIAL INFARCTION [None]
